FAERS Safety Report 5569895-2 (Version None)
Quarter: 2007Q4

REPORT INFORMATION
  Report Type: 
  Country: None (occurrence: None)
  Receive Date: 20071220
  Receipt Date: 20071218
  Transmission Date: 20080405
  Serious: Yes (Hospitalization, Other)
  Sender: FDA-Public Use
  Company Number: NO-GENENTECH-248883

PATIENT
  Sex: Female

DRUGS (2)
  1. RAPTIVA [Suspect]
     Indication: PSORIASIS
     Dosage: 1 MG/KG, 1/WEEK
     Route: 058
     Dates: end: 20050908
  2. ETANERCEPT [Suspect]
     Indication: PSORIASIS
     Dosage: 50 MG, 1/WEEK
     Dates: end: 20050909

REACTIONS (2)
  - ARTHRITIS [None]
  - INFECTIOUS MONONUCLEOSIS [None]
